FAERS Safety Report 7504125-3 (Version None)
Quarter: 2011Q2

REPORT INFORMATION
  Report Type: 
  Country: None (occurrence: None)
  Receive Date: 20110401
  Receipt Date: 20110317
  Transmission Date: 20111010
  Serious: No
  Sender: FDA-Public Use
  Company Number: US-004943

PATIENT
  Sex: Male
  Weight: 83.9154 kg

DRUGS (8)
  1. FIRMAGON [Suspect]
     Indication: PROSTATE CANCER
     Dosage: 240 MG TOTAL SUBCUTANEOUS, 80 MG 1X/MONTH  SUBCUTANEOUS
     Route: 058
     Dates: start: 20110216
  2. FIRMAGON [Suspect]
     Indication: PROSTATE CANCER
     Dosage: 240 MG TOTAL SUBCUTANEOUS, 80 MG 1X/MONTH  SUBCUTANEOUS
     Route: 058
     Dates: start: 20110114
  3. NORVASC [Concomitant]
  4. ALLOPURINOL [Concomitant]
  5. HYTRIN [Concomitant]
  6. METOPROLOL [Concomitant]
  7. ASPIRIN [Concomitant]
  8. FISH OIL [Concomitant]

REACTIONS (5)
  - BACK PAIN [None]
  - HYPERHIDROSIS [None]
  - PAIN [None]
  - ASTHENIA [None]
  - HOT FLUSH [None]
